FAERS Safety Report 9236097 (Version 2)
Quarter: 2013Q2

REPORT INFORMATION
  Report Type: Report from Study
  Country: US (occurrence: US)
  Receive Date: 20130417
  Receipt Date: 20130430
  Transmission Date: 20140414
  Serious: Yes (Other)
  Sender: FDA-Public Use
  Company Number: PHEH2013US008503

PATIENT
  Age: 58 Year
  Sex: Male

DRUGS (1)
  1. GILENYA [Suspect]
     Indication: MULTIPLE SCLEROSIS
     Dosage: 0.5 MG, QD
     Route: 048
     Dates: start: 20121016, end: 20130422

REACTIONS (4)
  - Liver disorder [Not Recovered/Not Resolved]
  - Hepatic pain [Not Recovered/Not Resolved]
  - Renal pain [Not Recovered/Not Resolved]
  - Malaise [Not Recovered/Not Resolved]
